FAERS Safety Report 7210803-6 (Version None)
Quarter: 2010Q4

REPORT INFORMATION
  Report Type: 
  Country: None (occurrence: None)
  Receive Date: 20101223
  Receipt Date: 20101217
  Transmission Date: 20110411
  Serious: Yes (Other)
  Sender: FDA-Public Use
  Company Number: NO-1184473

PATIENT
  Age: 52 Year
  Sex: Female

DRUGS (3)
  1. CIPROFLOXACIN [Suspect]
     Dates: start: 20100801, end: 20100901
  2. FLUCONAZOLE [Suspect]
     Dates: start: 20100801, end: 20100901
  3. SURMONTIL [Suspect]
     Indication: IRRITABLE BOWEL SYNDROME
     Dosage: 20 MG QD, ORAL
     Route: 048
     Dates: start: 20100920, end: 20100923

REACTIONS (2)
  - HEPATOCELLULAR INJURY [None]
  - SCLERAL DISCOLOURATION [None]
